FAERS Safety Report 19830108 (Version 1)
Quarter: 2021Q3

REPORT INFORMATION
  Report Type: Spontaneous
  Country: US (occurrence: US)
  Receive Date: 20210914
  Receipt Date: 20210914
  Transmission Date: 20211014
  Serious: No
  Sender: FDA-Public Use
  Company Number: None

PATIENT
  Age: 37 Year
  Sex: Female
  Weight: 145.9 kg

DRUGS (1)
  1. DIMETHYL FUMARATE [Suspect]
     Active Substance: DIMETHYL FUMARATE
     Indication: MULTIPLE SCLEROSIS
     Dosage: ?          OTHER FREQUENCY:1CAP TWICE DAILY ;?
     Route: 048
     Dates: start: 20210723, end: 20210820

REACTIONS (4)
  - Erythema [None]
  - Paraesthesia oral [None]
  - Paraesthesia [None]
  - Pruritus [None]

NARRATIVE: CASE EVENT DATE: 20210723
